FAERS Safety Report 4701736-5 (Version None)
Quarter: 2005Q2

REPORT INFORMATION
  Report Type: 
  Country: None (occurrence: None)
  Receive Date: 20050627
  Receipt Date: 20050613
  Transmission Date: 20051028
  Serious: Yes (Other)
  Sender: FDA-Public Use
  Company Number: SGB1-2005-00233

PATIENT
  Age: 34 Year
  Sex: Male

DRUGS (4)
  1. MIDODRINE HCL [Suspect]
     Indication: SYNCOPE
     Dosage: SEE IMAGE
     Dates: start: 20031203, end: 20031222
  2. MIDODRINE HCL [Suspect]
     Indication: SYNCOPE
     Dosage: SEE IMAGE
     Dates: start: 20031223, end: 20050110
  3. MIDODRINE HCL [Suspect]
     Indication: SYNCOPE
     Dosage: SEE IMAGE
     Dates: start: 20050110, end: 20050420
  4. MIDODRINE HCL [Suspect]
     Indication: SYNCOPE
     Dosage: SEE IMAGE
     Dates: start: 20050421

REACTIONS (1)
  - SPERM COUNT DECREASED [None]
